FAERS Safety Report 4847780-9 (Version None)
Quarter: 2005Q4

REPORT INFORMATION
  Report Type: 
  Country: None (occurrence: None)
  Receive Date: 20051207
  Receipt Date: 20051005
  Transmission Date: 20060501
  Serious: Yes (Hospitalization)
  Sender: FDA-Public Use
  Company Number: US-MERCK-0510USA04620

PATIENT
  Age: 77 Year
  Sex: Female
  Weight: 109 kg

DRUGS (6)
  1. VIOXX [Suspect]
     Indication: ARTHRITIS
     Route: 048
     Dates: start: 20010101, end: 20040101
  2. INSULIN [Concomitant]
     Indication: DIABETES MELLITUS NON-INSULIN-DEPENDENT
     Route: 065
  3. TYLENOL [Concomitant]
     Route: 065
  4. [THERAPY UNSPECIFIED] [Concomitant]
     Route: 065
  5. NITROGLYCERIN [Concomitant]
     Route: 065
  6. NORVASC [Concomitant]
     Route: 065

REACTIONS (8)
  - ARTERIOSCLEROSIS CORONARY ARTERY [None]
  - ATELECTASIS [None]
  - BLOOD GLUCOSE INCREASED [None]
  - ISCHAEMIC STROKE [None]
  - LACUNAR INFARCTION [None]
  - LOBAR PNEUMONIA [None]
  - MYOCARDIAL INFARCTION [None]
  - SINUS BRADYCARDIA [None]
